FAERS Safety Report 4791568-4 (Version None)
Quarter: 2005Q4

REPORT INFORMATION
  Report Type: 
  Country: None (occurrence: None)
  Receive Date: 20051007
  Receipt Date: 20050316
  Transmission Date: 20060501
  Serious: No
  Sender: FDA-Public Use
  Company Number: US-BRISTOL-MYERS SQUIBB COMPANY-12900445

PATIENT
  Age: 76 Year
  Sex: Female
  Weight: 58 kg

DRUGS (5)
  1. AVAPRO [Suspect]
     Indication: HYPERTENSION
     Dates: start: 20050106
  2. DYNACIRC CR [Concomitant]
  3. LIPITOR [Concomitant]
  4. CELEXA [Concomitant]
  5. TOPROL-XL [Concomitant]

REACTIONS (5)
  - DIARRHOEA [None]
  - FATIGUE [None]
  - HEADACHE [None]
  - RHINITIS [None]
  - SNEEZING [None]
